FAERS Safety Report 8129758-5 (Version None)
Quarter: 2012Q1

REPORT INFORMATION
  Report Type: 
  Country: None (occurrence: None)
  Receive Date: 20120103
  Receipt Date: 20110825
  Transmission Date: 20120608
  Serious: No
  Sender: FDA-Public Use
  Company Number: AE-2011-001131

PATIENT
  Age: 54 Year
  Sex: Male
  Weight: 108.8633 kg

DRUGS (8)
  1. INCIVEK [Suspect]
     Dosage: 750 MG (375 MG, 2 IN 1 D)
     Dates: start: 20110819
  2. NIFEDIPINE [Concomitant]
  3. LISINOPRIL [Concomitant]
  4. RIBAVIRIN [Concomitant]
  5. PROPRANOLOL [Concomitant]
  6. LANTUS [Concomitant]
  7. CITALOPRAM HYDROBROMIDE [Concomitant]
  8. PEGINTERFERON ALFA-2A [Concomitant]

REACTIONS (2)
  - UNDERDOSE [None]
  - BLOOD GLUCOSE INCREASED [None]
